FAERS Safety Report 22013516 (Version 2)
Quarter: 2023Q1

REPORT INFORMATION
  Report Type: Spontaneous
  Country: BA (occurrence: BA)
  Receive Date: 20230220
  Receipt Date: 20230307
  Transmission Date: 20230417
  Serious: Yes (Death, Other)
  Sender: FDA-Public Use
  Company Number: BA-BRISTOL-MYERS SQUIBB COMPANY-2023-024208

PATIENT

DRUGS (2)
  1. OPDIVO [Suspect]
     Active Substance: NIVOLUMAB
     Indication: Product used for unknown indication
     Dosage: 1 X 4ML - AT - IE - EU/1/15/1014/001
  2. OPDIVO [Suspect]
     Active Substance: NIVOLUMAB
     Dosage: 1 X 10ML - AT - IE - EU/1/15/1014/002

REACTIONS (1)
  - Death [Fatal]
